FAERS Safety Report 24054431 (Version 1)
Quarter: 2024Q3

REPORT INFORMATION
  Report Type: Spontaneous
  Country: US (occurrence: US)
  Receive Date: 20240705
  Receipt Date: 20240705
  Transmission Date: 20241016
  Serious: Yes (Life-Threatening, Hospitalization, Other)
  Sender: RANBAXY
  Company Number: US-SUN PHARMACEUTICAL INDUSTRIES LTD-2024R1-454706

PATIENT
  Age: 49 Year
  Sex: Male

DRUGS (4)
  1. METHOTREXATE [Suspect]
     Active Substance: METHOTREXATE
     Indication: Ankylosing spondylitis
     Route: 065
  2. METHOTREXATE [Suspect]
     Active Substance: METHOTREXATE
     Indication: Psoriatic arthropathy
  3. SULFASALAZINE [Suspect]
     Active Substance: SULFASALAZINE
     Indication: Psoriatic arthropathy
     Route: 065
  4. SULFASALAZINE [Suspect]
     Active Substance: SULFASALAZINE
     Indication: Ankylosing spondylitis

REACTIONS (10)
  - Human ehrlichiosis [Unknown]
  - Abdominal tenderness [Unknown]
  - Splenomegaly [Unknown]
  - Acute kidney injury [Unknown]
  - Mental status changes [Unknown]
  - Respiratory failure [Unknown]
  - Thrombotic thrombocytopenic purpura [Unknown]
  - Myelosuppression [Unknown]
  - Aspergillus infection [Recovering/Resolving]
  - Fungal infection [Recovering/Resolving]
